FAERS Safety Report 14875867 (Version 1)
Quarter: 2018Q2

REPORT INFORMATION
  Report Type: Spontaneous
  Country: FR (occurrence: FR)
  Receive Date: 20180510
  Receipt Date: 20180510
  Transmission Date: 20180711
  Serious: Yes (Hospitalization)
  Sender: FDA-Public Use
  Company Number: FR-SA-2018SA130918

PATIENT
  Age: 70 Year
  Sex: Female
  Weight: 53 kg

DRUGS (6)
  1. KARDEGIC [Suspect]
     Active Substance: ASPIRIN DL-LYSINE
     Indication: MYOCARDIAL INFARCTION
     Route: 048
     Dates: start: 20180103, end: 20180109
  2. LOVENOX [Suspect]
     Active Substance: ENOXAPARIN SODIUM
     Indication: THROMBOSIS PROPHYLAXIS
     Route: 058
     Dates: start: 20171227, end: 20180109
  3. EUPANTOL [Concomitant]
     Active Substance: PANTOPRAZOLE SODIUM
  4. AMLOR [Concomitant]
     Active Substance: AMLODIPINE BESYLATE
  5. TEGRETOL [Concomitant]
     Active Substance: CARBAMAZEPINE
  6. TAHOR [Concomitant]
     Active Substance: ATORVASTATIN CALCIUM

REACTIONS (3)
  - Cerebral haemorrhage [Recovering/Resolving]
  - Haemorrhage [Recovering/Resolving]
  - Intracranial mass [Recovering/Resolving]

NARRATIVE: CASE EVENT DATE: 20180110
